FAERS Safety Report 20867440 (Version 3)
Quarter: 2022Q3

REPORT INFORMATION
  Report Type: Spontaneous
  Country: US (occurrence: US)
  Receive Date: 20220524
  Receipt Date: 20220727
  Transmission Date: 20221026
  Serious: No
  Sender: FDA-Public Use
  Company Number: US-ENDO PHARMACEUTICALS INC-2022-002721

PATIENT
  Age: 76 Year
  Sex: Male
  Weight: 83.9 kg

DRUGS (8)
  1. EDEX [Suspect]
     Active Substance: ALPROSTADIL
     Indication: Penis disorder
     Dosage: 40 ?G, UNKNOWN, (FOR 20 YEARS)
     Route: 065
     Dates: start: 2007
  2. EDEX [Suspect]
     Active Substance: ALPROSTADIL
     Indication: Penis disorder
     Dosage: 40 ?G, UNKNOWN, (FOR 20 YEARS)
     Route: 065
     Dates: start: 2007
  3. EDEX [Suspect]
     Active Substance: ALPROSTADIL
     Indication: Penis disorder
     Dosage: 40 ?G, UNKNOWN, (FOR 20 YEARS)
     Route: 065
     Dates: start: 2007
  4. EDEX [Suspect]
     Active Substance: ALPROSTADIL
     Indication: Penis disorder
     Dosage: 40 ?G, UNKNOWN, (FOR 20 YEARS)
     Route: 065
     Dates: start: 2007
  5. EDEX [Suspect]
     Active Substance: ALPROSTADIL
     Dosage: UNK UNKNOWN, UNKNOWN
     Route: 065
  6. EDEX [Suspect]
     Active Substance: ALPROSTADIL
     Dosage: UNK UNKNOWN, UNKNOWN
     Route: 065
  7. EDEX [Suspect]
     Active Substance: ALPROSTADIL
     Dosage: UNK UNKNOWN, UNKNOWN
     Route: 065
  8. EDEX [Suspect]
     Active Substance: ALPROSTADIL
     Dosage: UNK UNKNOWN, UNKNOWN
     Route: 065

REACTIONS (3)
  - Drug ineffective [Unknown]
  - Product administration error [Unknown]
  - Device issue [None]

NARRATIVE: CASE EVENT DATE: 20220401
